FAERS Safety Report 10607926 (Version 1)
Quarter: 2014Q4

REPORT INFORMATION
  Report Type: Spontaneous
  Country: US (occurrence: US)
  Receive Date: 20141125
  Receipt Date: 20141125
  Transmission Date: 20150529
  Serious: No
  Sender: FDA-Public Use
  Company Number: US-BRISTOL-MYERS SQUIBB COMPANY-21390539

PATIENT
  Age: 93 Year
  Sex: Female
  Weight: 68.03 kg

DRUGS (1)
  1. FARXIGA [Suspect]
     Active Substance: DAPAGLIFLOZIN PROPANEDIOL
     Dosage: INCREASED DOSE TO 10 MG

REACTIONS (1)
  - Dry mouth [Recovered/Resolved]
